FAERS Safety Report 5029242-1 (Version None)
Quarter: 2006Q2

REPORT INFORMATION
  Report Type: 
  Country: None (occurrence: None)
  Receive Date: 20060616
  Receipt Date: 20060616
  Transmission Date: 20061013
  Serious: Yes (Other)
  Sender: FDA-Public Use
  Company Number: None

PATIENT
  Age: 80 Year
  Sex: Male
  Weight: 95 kg

DRUGS (12)
  1. LYRICA [Suspect]
     Indication: POST HERPETIC NEURALGIA
     Dosage: 100 MG BID PO
     Route: 048
     Dates: start: 20060612, end: 20060614
  2. REMERON [Suspect]
     Indication: DEPRESSION
     Dosage: 7.5 MG DAILY PO   YEAR OR MORE
     Route: 048
  3. WELLBUTRIN [Concomitant]
  4. HYDROCHLOROTHIAZIDE [Concomitant]
  5. ZOCOR [Concomitant]
  6. TERAZOSIN HCL [Concomitant]
  7. LISINOPRIL [Concomitant]
  8. ZANTAC [Concomitant]
  9. HUMALOG [Concomitant]
  10. ASPIRIN [Concomitant]
  11. ATENOLOL [Concomitant]
  12. ALDACTONE [Concomitant]

REACTIONS (1)
  - THROMBOCYTOPENIA [None]
